FAERS Safety Report 9262645 (Version 1)
Quarter: 2013Q2

REPORT INFORMATION
  Report Type: Spontaneous
  Country: CH (occurrence: CH)
  Receive Date: 20130430
  Receipt Date: 20130430
  Transmission Date: 20140414
  Serious: Yes (Hospitalization, Other)
  Sender: FDA-Public Use
  Company Number: CH-BAYER-2013-027295

PATIENT
  Age: 80 Year
  Sex: Male

DRUGS (7)
  1. XARELTO [Suspect]
     Indication: CEREBROVASCULAR ACCIDENT PROPHYLAXIS
     Dosage: 20 MG, QD
  2. XARELTO [Interacting]
     Indication: ATRIAL FIBRILLATION
  3. ASPIRIN CARDIO [Interacting]
     Dosage: 100 MG, QD
  4. BELOC ZOK [Concomitant]
     Dosage: 12.5 MG, QD
  5. CIPRALEX [Concomitant]
     Dosage: 10 MG, QD
  6. MEPHANOL [Concomitant]
     Dosage: 100 MG, QD
  7. SORTIS [Concomitant]
     Dosage: 20 MG, QD

REACTIONS (5)
  - Haemorrhage intracranial [Unknown]
  - Pulmonary embolism [None]
  - Loss of consciousness [Unknown]
  - Aphasia [Unknown]
  - Drug interaction [None]
